FAERS Safety Report 7229116-1 (Version None)
Quarter: 2011Q1

REPORT INFORMATION
  Report Type: 
  Country: None (occurrence: None)
  Receive Date: 20110117
  Receipt Date: 20110112
  Transmission Date: 20110831
  Serious: Yes (Hospitalization, Other)
  Sender: FDA-Public Use
  Company Number: JP-BAYER-201010237BYL

PATIENT
  Sex: Male
  Weight: 69.5 kg

DRUGS (15)
  1. BIOFERMIN R [Concomitant]
     Indication: DIARRHOEA
     Route: 048
  2. DIOVAN [Concomitant]
  3. ZYLORIC [Concomitant]
     Indication: HYPERLIPIDAEMIA
     Dosage: 100 MG (DAILY DOSE), , ORAL
     Route: 048
  4. VITAMEDIN [Concomitant]
     Indication: HYPOVITAMINOSIS
     Dosage: 75 MG (DAILY DOSE), , ORAL
     Route: 048
  5. BIOFERMIN R [Concomitant]
  6. NEXAVAR [Suspect]
     Indication: HEPATIC NEOPLASM MALIGNANT
     Route: 048
     Dates: start: 20100112, end: 20100405
  7. DIOVAN [Concomitant]
     Indication: HYPERTENSION
     Dosage: 80 MG (DAILY DOSE), , ORAL
     Route: 048
  8. URSO 250 [Concomitant]
     Indication: HEPATIC CIRRHOSIS
     Dosage: 600 MG (DAILY DOSE), , ORAL
     Route: 048
  9. URSO 250 [Concomitant]
  10. ZYLORIC [Concomitant]
  11. KAYWAN [Concomitant]
  12. JUVELA N [Concomitant]
     Indication: HYPOVITAMINOSIS
     Dosage: 300 MG (DAILY DOSE), , ORAL
     Route: 048
  13. JUVELA N [Concomitant]
  14. VITAMEDIN [Concomitant]
  15. KAYWAN [Concomitant]
     Indication: HEPATIC CIRRHOSIS
     Dosage: 5 MG (DAILY DOSE), , ORAL
     Route: 048

REACTIONS (4)
  - BLOOD ALBUMIN INCREASED [None]
  - HEPATIC FUNCTION ABNORMAL [None]
  - HAEMATEMESIS [None]
  - HYPERTENSION [None]
